FAERS Safety Report 9075165 (Version 1)
Quarter: 2013Q1

REPORT INFORMATION
  Report Type: Spontaneous
  Country: US (occurrence: US)
  Receive Date: 20130129
  Receipt Date: 20130129
  Transmission Date: 20140127
  Serious: No
  Sender: FDA-Public Use
  Company Number: US-B.I. PHARMACEUTICALS,INC./RIDGEFIELD-2013-BI-01288BP

PATIENT
  Sex: Male

DRUGS (7)
  1. MOBIC [Suspect]
  2. GABAPENTIN [Suspect]
  3. ALLOPURINOL [Suspect]
  4. ENBREL [Suspect]
  5. PLAQUENIL [Suspect]
  6. PREDNISONE [Suspect]
  7. PICATO [Concomitant]
     Dates: start: 20130109

REACTIONS (1)
  - Vision blurred [Unknown]
